FAERS Safety Report 6407929-3 (Version None)
Quarter: 2009Q4

REPORT INFORMATION
  Report Type: 
  Country: None (occurrence: None)
  Receive Date: 20091016
  Receipt Date: 20091007
  Transmission Date: 20100525
  Serious: Yes (Hospitalization)
  Sender: FDA-Public Use
  Company Number: AX222-09-0468

PATIENT
  Age: 50 Year
  Sex: Male

DRUGS (4)
  1. CISPLATIN [Suspect]
     Indication: HEAD AND NECK CANCER
     Dosage: 150 MG, INTRAVENOUS
     Route: 042
     Dates: start: 20090831
  2. ABRAXANE [Suspect]
     Indication: HEAD AND NECK CANCER
     Dosage: 150 MG INTRAVENOUS
     Route: 042
     Dates: start: 20090831, end: 20091006
  3. FLUOROURACIL [Suspect]
     Indication: HEAD AND NECK CANCER
     Dosage: 2000 MG, INTRAVENOUS
     Route: 042
     Dates: start: 20090831, end: 20091003
  4. LENOLTEC [Concomitant]

REACTIONS (2)
  - BODY TEMPERATURE INCREASED [None]
  - HYPERTENSION [None]
